FAERS Safety Report 10079450 (Version 2)
Quarter: 2014Q2

REPORT INFORMATION
  Report Type: Report from Study
  Country: CA (occurrence: CA)
  Receive Date: 20140415
  Receipt Date: 20140428
  Transmission Date: 20141212
  Serious: Yes (Hospitalization, Other)
  Sender: FDA-Public Use
  Company Number: CA-BRISTOL-MYERS SQUIBB COMPANY-20615365

PATIENT
  Age: 65 Year
  Sex: Male

DRUGS (12)
  1. ORENCIA [Suspect]
     Indication: RHEUMATOID ARTHRITIS
     Dosage: 1DF: 1000 UNIT NOS.
     Dates: start: 20110109
  2. SULINDAC [Concomitant]
  3. METHOTREXATE TABS [Concomitant]
  4. OMEPRAZOLE [Concomitant]
  5. ENALAPRIL [Concomitant]
  6. FELODIPINE [Concomitant]
  7. LIPITOR [Concomitant]
  8. FOLIC ACID [Concomitant]
     Dosage: FREQ:Q MON/WED/FR.
  9. HYDROCHLOROTHIAZIDE [Concomitant]
  10. VITAMIN B12 [Concomitant]
  11. VITAMIN D [Concomitant]
  12. CALCIUM [Concomitant]

REACTIONS (4)
  - Myocardial infarction [Unknown]
  - Cardiac pacemaker insertion [Unknown]
  - Cellulitis [Unknown]
  - Arthropathy [Unknown]
